FAERS Safety Report 17228257 (Version 1)
Quarter: 2020Q1

REPORT INFORMATION
  Report Type: Spontaneous
  Country: ES (occurrence: ES)
  Receive Date: 20200103
  Receipt Date: 20200103
  Transmission Date: 20200409
  Serious: Yes (Other)
  Sender: FDA-Public Use
  Company Number: ES-MICRO LABS LIMITED-ML2019-03936

PATIENT
  Age: 43 Year
  Sex: Female

DRUGS (3)
  1. CHONDROITIN [Concomitant]
     Active Substance: CHONDROITIN
     Indication: MENISCUS INJURY
  2. DIPYRONE [Concomitant]
     Active Substance: DIPYRONE
     Indication: MENISCUS INJURY
  3. CELECOXIB. [Suspect]
     Active Substance: CELECOXIB
     Indication: MENISCUS INJURY
     Dosage: 200 MG/DAY

REACTIONS (1)
  - Bipolar disorder [Unknown]
